FAERS Safety Report 6212370-2 (Version None)
Quarter: 2009Q2

REPORT INFORMATION
  Report Type: 
  Country: None (occurrence: None)
  Receive Date: 20090529
  Receipt Date: 20090521
  Transmission Date: 20091009
  Serious: Yes (Other)
  Sender: FDA-Public Use
  Company Number: GXKR2009PL06064

PATIENT
  Age: 43 Year
  Sex: Female
  Weight: 75 kg

DRUGS (3)
  1. FLONIDAN (NGX) (LORATADINE) TABLET, 10 MG [Suspect]
     Indication: URTICARIA
     Dosage: 10 MG/DAY, ORAL
     Route: 048
     Dates: start: 20090416, end: 20090418
  2. ZYRTEC [Suspect]
     Indication: URTICARIA
     Dosage: 10 MG/DAY, ORAL
     Route: 048
     Dates: start: 20090416, end: 20090418
  3. DIPHERGAN (PROMETHAZINE HYDROCHLORIDE) TABLET, 10MG [Suspect]
     Indication: URTICARIA
     Dosage: 10 MG/DAY, ORAL
     Route: 048
     Dates: start: 20090416, end: 20090418

REACTIONS (3)
  - BALANCE DISORDER [None]
  - SOMNOLENCE [None]
  - VISUAL IMPAIRMENT [None]
